FAERS Safety Report 5521935-2 (Version None)
Quarter: 2007Q4

REPORT INFORMATION
  Report Type: 
  Country: None (occurrence: None)
  Receive Date: 20071120
  Receipt Date: 20070105
  Transmission Date: 20080405
  Serious: No
  Sender: FDA-Public Use
  Company Number: US-BRISTOL-MYERS SQUIBB COMPANY-13634605

PATIENT
  Sex: Female

DRUGS (3)
  1. AVALIDE [Suspect]
  2. LIPITOR [Concomitant]
  3. LIBRAX [Concomitant]

REACTIONS (2)
  - LIBIDO DECREASED [None]
  - TREMOR [None]
